FAERS Safety Report 16348254 (Version 1)
Quarter: 2019Q2

REPORT INFORMATION
  Report Type: Spontaneous
  Country: US (occurrence: US)
  Receive Date: 20190418
  Receipt Date: 20190418
  Transmission Date: 20190711
  Serious: Yes (Hospitalization, Other)
  Sender: FDA-Public Use
  Company Number: None

PATIENT
  Age: 74 Year
  Sex: Female
  Weight: 61.6 kg

DRUGS (2)
  1. MIRCERA [Suspect]
     Active Substance: METHOXY POLYETHYLENE GLYCOL-EPOETIN BETA
     Indication: ANAEMIA
     Dosage: STRENGTH 30MCG/0.3ML
     Route: 042
     Dates: start: 20181121, end: 20181221
  2. MIRCERA [Suspect]
     Active Substance: METHOXY POLYETHYLENE GLYCOL-EPOETIN BETA
     Indication: CHRONIC KIDNEY DISEASE
     Dosage: STRENGTH 30MCG/0.3ML
     Route: 042
     Dates: start: 20181121, end: 20181221

REACTIONS (4)
  - Unresponsive to stimuli [None]
  - Feeling hot [None]
  - Hyperhidrosis [None]
  - Chest pain [None]

NARRATIVE: CASE EVENT DATE: 20181221
